FAERS Safety Report 21784327 (Version 1)
Quarter: 2022Q4

REPORT INFORMATION
  Report Type: Spontaneous
  Country: JP (occurrence: JP)
  Receive Date: 20221227
  Receipt Date: 20221227
  Transmission Date: 20230113
  Serious: No
  Sender: FDA-Public Use
  Company Number: JP-ELI_LILLY_AND_COMPANY-JP202212010616

PATIENT
  Sex: Female

DRUGS (1)
  1. ZYPREXA ZYDIS [Suspect]
     Active Substance: OLANZAPINE
     Indication: Anxiety disorder
     Dosage: 5 MG, DAILY
     Route: 048

REACTIONS (3)
  - Depressed mood [Unknown]
  - Off label use [Unknown]
  - White blood cell count decreased [Unknown]
